FAERS Safety Report 8128052-6 (Version None)
Quarter: 2012Q1

REPORT INFORMATION
  Report Type: 
  Country: None (occurrence: None)
  Receive Date: 20120210
  Receipt Date: 20120202
  Transmission Date: 20120608
  Serious: Yes (Other)
  Sender: FDA-Public Use
  Company Number: BE-JNJFOC-20111207138

PATIENT
  Sex: Male
  Weight: 74 kg

DRUGS (3)
  1. ABIRATERONE ACETATE [Suspect]
     Route: 048
  2. ABIRATERONE ACETATE [Suspect]
     Indication: PROSTATE CANCER METASTATIC
     Route: 048
     Dates: start: 20110906, end: 20111205
  3. CLOPIDOGREL [Concomitant]
     Route: 065

REACTIONS (1)
  - HEPATITIS TOXIC [None]
